FAERS Safety Report 22031793 (Version 1)
Quarter: 2023Q1

REPORT INFORMATION
  Report Type: Spontaneous
  Country: US (occurrence: US)
  Receive Date: 20230224
  Receipt Date: 20230224
  Transmission Date: 20230417
  Serious: No
  Sender: FDA-Public Use
  Company Number: US-BEH-2022142149

PATIENT
  Age: 66 Year
  Sex: Female
  Weight: 78.912 kg

DRUGS (6)
  1. HAEGARDA [Suspect]
     Active Substance: HUMAN C1-ESTERASE INHIBITOR
     Indication: Product used for unknown indication
     Dosage: 5000 INTERNATIONAL UNIT, BIW
     Route: 058
     Dates: start: 20180828
  2. HAEGARDA [Suspect]
     Active Substance: HUMAN C1-ESTERASE INHIBITOR
     Dosage: UNK
     Route: 058
  3. HAEGARDA [Suspect]
     Active Substance: HUMAN C1-ESTERASE INHIBITOR
     Dosage: UNK
     Route: 058
  4. HAEGARDA [Suspect]
     Active Substance: HUMAN C1-ESTERASE INHIBITOR
     Dosage: UNK
     Route: 058
  5. HAEGARDA [Suspect]
     Active Substance: HUMAN C1-ESTERASE INHIBITOR
     Indication: Hereditary angioedema
     Dosage: 6000 INTERNATIONAL UNIT/KILOGRAM
     Route: 058
  6. HAEGARDA [Suspect]
     Active Substance: HUMAN C1-ESTERASE INHIBITOR
     Indication: Prophylaxis
     Dosage: 5000 INTERNATIONAL UNIT, BID
     Route: 058

REACTIONS (12)
  - No adverse event [Unknown]
  - Device issue [Unknown]
  - Product preparation issue [Unknown]
  - No adverse event [Unknown]
  - Device issue [Unknown]
  - Product preparation issue [Unknown]
  - No adverse event [Unknown]
  - Device issue [Unknown]
  - Product preparation issue [Unknown]
  - Fatigue [Unknown]
  - Device issue [Unknown]
  - Product preparation issue [Unknown]

NARRATIVE: CASE EVENT DATE: 20220125
